FAERS Safety Report 8848581 (Version 1)
Quarter: 2012Q4

REPORT INFORMATION
  Report Type: Report from Study
  Country: FR (occurrence: FR)
  Receive Date: 20121018
  Receipt Date: 20121018
  Transmission Date: 20130627
  Serious: Yes (Hospitalization)
  Sender: FDA-Public Use
  Company Number: FR-GLAXOSMITHKLINE-Z0005800D

PATIENT
  Age: 39 Year
  Sex: Male

DRUGS (11)
  1. AMBRISENTAN [Suspect]
     Indication: PULMONARY ARTERIAL HYPERTENSION
     Dosage: 5MG Per day
     Route: 048
     Dates: start: 20100211
  2. EPOPROSTENOL [Suspect]
     Indication: PULMONARY ARTERIAL HYPERTENSION
     Dosage: .014UKM Per day
     Route: 042
     Dates: start: 201112, end: 20120412
  3. OXYGEN [Concomitant]
     Indication: PULMONARY ARTERIAL HYPERTENSION
     Dosage: 2U Per day
     Route: 055
     Dates: start: 201111
  4. POTASSIUM CHLORIDE [Concomitant]
     Indication: PROPHYLAXIS
     Dosage: 600MG Per day
     Route: 048
     Dates: end: 20120406
  5. SPIRONOLACTONE [Concomitant]
     Indication: PULMONARY ARTERIAL HYPERTENSION
     Dosage: 50MG Per day
     Route: 048
  6. FUROSEMIDE [Concomitant]
     Indication: PULMONARY ARTERIAL HYPERTENSION
     Route: 048
  7. METOCLOPRAMIDE [Concomitant]
     Indication: PROPHYLAXIS OF NAUSEA AND VOMITING
     Dosage: 10MG Six times per day
     Route: 048
     Dates: end: 20120406
  8. FLUINDIONE [Concomitant]
     Indication: JUGULAR VEIN THROMBOSIS
     Route: 048
     Dates: start: 200412
  9. TRAMADOL [Concomitant]
     Indication: PAIN
     Dosage: 50MG Twice per day
     Route: 048
  10. DIOSMECTITE [Concomitant]
     Indication: PROPHYLAXIS AGAINST DIARRHOEA
     Dosage: 3 per day
     Route: 048
  11. PARACETAMOL [Concomitant]
     Indication: PAIN
     Dosage: 1000MG Three times per day
     Route: 048

REACTIONS (2)
  - Toxic skin eruption [Recovered/Resolved]
  - Staphylococcal bacteraemia [Recovered/Resolved]
